FAERS Safety Report 4343641-2 (Version None)
Quarter: 2004Q2

REPORT INFORMATION
  Report Type: 
  Country: None (occurrence: None)
  Receive Date: 20040419
  Receipt Date: 20040406
  Transmission Date: 20050107
  Serious: Yes (Disabling, Other)
  Sender: FDA-Public Use
  Company Number: 2004011175

PATIENT
  Sex: Male

DRUGS (17)
  1. NEURONTIN [Suspect]
     Indication: NEURITIS
     Dosage: SEE IMAGE, ORAL
     Route: 048
     Dates: end: 20040101
  2. NEURONTIN [Suspect]
     Indication: NEUROPATHY PERIPHERAL
     Dosage: SEE IMAGE, ORAL
     Route: 048
     Dates: end: 20040101
  3. NEURONTIN [Suspect]
     Indication: NEURITIS
     Dosage: SEE IMAGE, ORAL
     Route: 048
     Dates: start: 20040101
  4. NEURONTIN [Suspect]
     Indication: NEUROPATHY PERIPHERAL
     Dosage: SEE IMAGE, ORAL
     Route: 048
     Dates: start: 20040101
  5. ALL OTHER THERAPEUTIC PRODUCTS (ALL OTHER THERAPEUTIC PRODUCTS) [Suspect]
     Indication: PAIN
  6. ALL OTHER THERAPEUTIC PRODUCTS (ALL OTHER THERAPEUTIC PRODUCTS) [Suspect]
     Indication: ILL-DEFINED DISORDER
  7. INSULIN [Suspect]
     Indication: ILL-DEFINED DISORDER
  8. MAGNESIUM HYDROXIDE (MAGNESIUM HYDROXIDE) [Concomitant]
  9. OXYCODONE HCL [Concomitant]
  10. FENTANYL [Concomitant]
  11. DIAZEPAM [Concomitant]
  12. DOXAZOSIN MESYLATE [Concomitant]
  13. ZOLPIDIEM TARTRATE (ZOLPIDEM TARTRATE) [Concomitant]
  14. MULTIVITAMIN [Concomitant]
  15. METFORMIN HCL [Concomitant]
  16. ROSUVASTATIN (ROSUVASTATIN) [Concomitant]
  17. LOSARTAN POTASSIUM [Concomitant]

REACTIONS (4)
  - CONSTIPATION [None]
  - DYSPEPSIA [None]
  - PHARMACEUTICAL PRODUCT COMPLAINT [None]
  - TOOTH LOSS [None]
